FAERS Safety Report 5943280-3 (Version None)
Quarter: 2008Q4

REPORT INFORMATION
  Report Type: 
  Country: None (occurrence: None)
  Receive Date: 20081105
  Receipt Date: 20081105
  Transmission Date: 20090506
  Serious: Yes (Other)
  Sender: FDA-Public Use
  Company Number: None

PATIENT
  Age: 39 Year
  Sex: Female
  Weight: 83.9154 kg

DRUGS (7)
  1. PRISTIQ [Suspect]
     Indication: BIPOLAR I DISORDER
     Dosage: 50MG ONCE A DAY PO
     Route: 048
     Dates: start: 20080915, end: 20080921
  2. ALPRAZOLAM [Concomitant]
  3. GEODON [Concomitant]
  4. CITALOPRAM HYDROBROMIDE [Concomitant]
  5. ZOVIA 1/35E-21 [Concomitant]
  6. LEVOTHYROXINE SODIUM [Concomitant]
  7. NEFAZODONE HCL [Concomitant]

REACTIONS (20)
  - AGITATION [None]
  - ANXIETY [None]
  - DECREASED APPETITE [None]
  - DISTURBANCE IN ATTENTION [None]
  - EXAGGERATED STARTLE RESPONSE [None]
  - EYE MOVEMENT DISORDER [None]
  - FEAR [None]
  - FEELING ABNORMAL [None]
  - FEELING JITTERY [None]
  - HALLUCINATION, AUDITORY [None]
  - HEADACHE [None]
  - HYPERACUSIS [None]
  - HYPOVENTILATION [None]
  - MANIA [None]
  - MUSCLE RIGIDITY [None]
  - PANIC ATTACK [None]
  - SELF-INJURIOUS IDEATION [None]
  - TEARFULNESS [None]
  - THINKING ABNORMAL [None]
  - TREMOR [None]
